FAERS Safety Report 7733010-7 (Version None)
Quarter: 2011Q3

REPORT INFORMATION
  Report Type: 
  Country: None (occurrence: None)
  Receive Date: 20110907
  Receipt Date: 20110901
  Transmission Date: 20111222
  Serious: No
  Sender: FDA-Public Use
  Company Number: US-PFIZER INC-2011192535

PATIENT
  Sex: Female
  Weight: 109 kg

DRUGS (3)
  1. NEURONTIN [Suspect]
     Indication: NEUROPATHY PERIPHERAL
     Dosage: 800 MG, 3X/DAY
     Route: 048
     Dates: start: 20090301, end: 20110801
  2. ADVAIR DISKUS 100/50 [Concomitant]
     Indication: ASTHMA
     Dosage: UNK
  3. LEVOTHYROXINE [Concomitant]
     Indication: THYROIDECTOMY
     Dosage: UNK

REACTIONS (11)
  - HYPERHIDROSIS [None]
  - MALAISE [None]
  - WITHDRAWAL SYNDROME [None]
  - NEUROPATHY PERIPHERAL [None]
  - PARAESTHESIA [None]
  - FEELING JITTERY [None]
  - PANIC ATTACK [None]
  - ALOPECIA [None]
  - PAIN [None]
  - BURNING SENSATION [None]
  - NAUSEA [None]
